FAERS Safety Report 11148951 (Version 2)
Quarter: 2016Q1

REPORT INFORMATION
  Report Type: Spontaneous
  Country: US (occurrence: US)
  Receive Date: 20150529
  Receipt Date: 20160212
  Transmission Date: 20160525
  Serious: Yes (Death, Life-Threatening)
  Sender: FDA-Public Use
  Company Number: US-LUNDBECK-DKLU1112880

PATIENT
  Age: 63 Year
  Sex: Male

DRUGS (1)
  1. NORTHERA [Suspect]
     Active Substance: DROXIDOPA
     Indication: AUTONOMIC FAILURE SYNDROME
     Route: 048
     Dates: start: 20141021

REACTIONS (2)
  - Amyloidosis [Unknown]
  - Death [Fatal]

NARRATIVE: CASE EVENT DATE: 20150517
